FAERS Safety Report 19966183 (Version 1)
Quarter: 2021Q4

REPORT INFORMATION
  Report Type: Spontaneous
  Country: FR (occurrence: FR)
  Receive Date: 20211019
  Receipt Date: 20211019
  Transmission Date: 20220303
  Serious: Yes (Other)
  Sender: FDA-Public Use
  Company Number: None

PATIENT
  Age: 79 Year
  Sex: Female
  Weight: 44 kg

DRUGS (1)
  1. XELODA [Suspect]
     Active Substance: CAPECITABINE
     Indication: Adenocarcinoma of colon
     Dosage: 1250MG / M2 MORNING AND EVENING FOR 14 DAYS THEN A 7-DAY BREAK FOR THE 1ST AND 2ND CYCLES; REDUCTION
     Route: 048
     Dates: start: 20190308, end: 20190526

REACTIONS (2)
  - Intracardiac thrombus [Recovered/Resolved]
  - Atrial fibrillation [Not Recovered/Not Resolved]

NARRATIVE: CASE EVENT DATE: 20190528
